FAERS Safety Report 5288815-1 (Version None)
Quarter: 2007Q2

REPORT INFORMATION
  Report Type: 
  Country: None (occurrence: None)
  Receive Date: 20070405
  Receipt Date: 20070328
  Transmission Date: 20071010
  Serious: Yes (Hospitalization)
  Sender: FDA-Public Use
  Company Number: FR-ABBOTT-07P-056-0357219-00

PATIENT
  Sex: Male
  Weight: 88 kg

DRUGS (5)
  1. KALETRA [Suspect]
     Indication: HIV INFECTION
     Dosage: 3 TABS IN THE AM AND 2 TABS IN THE EVENING
     Route: 048
     Dates: start: 20061110, end: 20061121
  2. KALETRA [Suspect]
     Indication: HIV INFECTION
     Route: 048
  3. KALETRA [Suspect]
     Route: 048
     Dates: start: 20061101
  4. TENOFOVIR/DISOPROXIL [Concomitant]
     Indication: HIV INFECTION
     Route: 048
  5. LAMIVUDINE [Concomitant]
     Indication: HIV INFECTION
     Route: 048

REACTIONS (2)
  - CONSTIPATION [None]
  - SUBILEUS [None]
